FAERS Safety Report 8677884 (Version 2)
Quarter: 2012Q4

REPORT INFORMATION
  Report Type: 
  Country: US (occurrence: US)
  Receive Date: 20120723
  Receipt Date: 20120903
  Transmission Date: 20130627
  Serious: Yes (Death)
  Sender: FDA-Public Use
  Company Number: US-PFIZER INC-2012176279

PATIENT
  Age: 83 Year
  Sex: Female

DRUGS (6)
  1. HEPARIN SODIUM [Suspect]
     Indication: STENT PLACEMENT
     Dosage: 5000 IU, single
     Route: 013
     Dates: start: 20120716, end: 20120716
  2. ACETYLSALICYLIC ACID [Concomitant]
     Dosage: 325 mg, 1x/day
  3. PLAVIX [Concomitant]
     Dosage: 75 mg, 1x/day
  4. HYDROCHLOROTHIAZIDE [Concomitant]
     Dosage: 12.5 mg, one  every PM
  5. LISINOPRIL [Concomitant]
     Dosage: 10 mg, every PM
  6. LOVASTATIN [Concomitant]
     Dosage: 10 mg, At bedtime

REACTIONS (1)
  - Basal ganglia haemorrhage [Fatal]
